FAERS Safety Report 9930142 (Version 1)
Quarter: 2014Q1

REPORT INFORMATION
  Report Type: Spontaneous
  Country: US (occurrence: US)
  Receive Date: 20140227
  Receipt Date: 20140227
  Transmission Date: 20141002
  Serious: No
  Sender: FDA-Public Use
  Company Number: US-AMGEN-USASP2013069542

PATIENT
  Age: 57 Year
  Sex: Male

DRUGS (13)
  1. ASPIRE [Concomitant]
     Dosage: 81 MG, UNK
  2. LISINOPRIL [Concomitant]
     Dosage: 10 MG, UNK
  3. PRAVASTATIN [Concomitant]
     Dosage: 10 MG, UNK
  4. MELOXICAM [Concomitant]
     Dosage: 15 MG, UNK
  5. FLOMAX                             /00889901/ [Concomitant]
     Dosage: 0.4 MG, UNK
  6. LANTUS [Concomitant]
     Dosage: UNK
  7. METHOTREXATE [Concomitant]
     Dosage: 2.5 MG, UNK
  8. ENBREL [Suspect]
     Indication: PRODUCT USED FOR UNKNOWN INDICATION
     Dosage: 50 MG, 2 TIMES/WK
     Route: 058
     Dates: start: 201002
  9. METFORMIN [Concomitant]
     Dosage: 850 MG, UNK
  10. TRAMADOL HCL [Concomitant]
     Dosage: 50 MG, UNK
  11. HUMALOG [Concomitant]
     Dosage: 100/ML UNK, UNK
  12. PANTOPRAZOLE [Concomitant]
     Dosage: 20 MG, UNK
  13. MULTIVITAMINS, PLAIN [Concomitant]
     Dosage: UNK

REACTIONS (1)
  - Psoriasis [Unknown]
